FAERS Safety Report 5068463-9 (Version None)
Quarter: 2006Q3

REPORT INFORMATION
  Report Type: 
  Country: None (occurrence: None)
  Receive Date: 20060802
  Receipt Date: 20051011
  Transmission Date: 20061208
  Serious: No
  Sender: FDA-Public Use
  Company Number: US-BRISTOL-MYERS SQUIBB COMPANY-13141338

PATIENT
  Age: 77 Year
  Sex: Female
  Weight: 100 kg

DRUGS (7)
  1. COUMADIN [Suspect]
     Indication: THROMBOSIS
     Dosage: 5 MG DAILY ALTERNATING WITH 2.5 MG DAILY
     Dates: start: 20050201
  2. COUMADIN [Suspect]
     Indication: ANEURYSM
     Dosage: 5 MG DAILY ALTERNATING WITH 2.5 MG DAILY
     Dates: start: 20050201
  3. LEVOXYL [Concomitant]
     Dosage: FOR YEARS
  4. HYDROCHLOROTHIAZIDE [Concomitant]
     Dosage: FOR 7 OR 8 MONTHS
  5. BISOPROLOL FUMARATE [Concomitant]
     Dosage: FOR A WHILE
  6. NORVASC [Concomitant]
  7. METFORMIN HYDROCHLORIDE [Concomitant]
     Dosage: FOR OVER ONE YEAR

REACTIONS (2)
  - CONSTIPATION [None]
  - DIARRHOEA [None]
